FAERS Safety Report 11317455 (Version 1)
Quarter: 2015Q3

REPORT INFORMATION
  Report Type: Report from Study
  Country: CA (occurrence: CA)
  Receive Date: 20150728
  Receipt Date: 20150728
  Transmission Date: 20151125
  Serious: Yes (Death, Other)
  Sender: FDA-Public Use
  Company Number: CA-GILEAD-2015-0164852

PATIENT
  Age: 79 Year
  Sex: Male

DRUGS (1)
  1. LEDIPASVIR/SOFOSBUVIR [Suspect]
     Active Substance: LEDIPASVIR\SOFOSBUVIR
     Indication: HEPATITIS C
     Dosage: UNK
     Route: 065

REACTIONS (10)
  - Ileus [Unknown]
  - Haemodynamic instability [Unknown]
  - Benign prostatic hyperplasia [Unknown]
  - Oesophageal varices haemorrhage [Unknown]
  - Pyrexia [Unknown]
  - White blood cell count increased [Unknown]
  - Ascites [Unknown]
  - Abdominal pain [Unknown]
  - Post procedural haemorrhage [Unknown]
  - Death [Fatal]
